FAERS Safety Report 7813831-2 (Version None)
Quarter: 2011Q4

REPORT INFORMATION
  Report Type: 
  Country: None (occurrence: None)
  Receive Date: 20111014
  Receipt Date: 20110930
  Transmission Date: 20120403
  Serious: Yes (Other)
  Sender: FDA-Public Use
  Company Number: US-BAYER-2011-024303

PATIENT
  Age: 41 Year
  Sex: Female
  Weight: 70.295 kg

DRUGS (13)
  1. MOBIC [Concomitant]
     Dosage: 15 MG, QD
  2. YAZ [Suspect]
     Indication: OVARIAN CYST
     Dosage: UNK
     Dates: start: 20070703, end: 20070905
  3. LOTRISONE [Concomitant]
     Dosage: UNK UNK, PRN
     Route: 061
  4. ATIVAN [Concomitant]
     Dosage: 0.5 MG, QD
     Route: 048
  5. PHENERGAN [Concomitant]
     Indication: NAUSEA
     Dosage: 25 MG, QD
     Route: 048
     Dates: start: 19991101
  6. SKELAXIN [Concomitant]
     Indication: MUSCLE RELAXANT THERAPY
     Dosage: 800 MG, TID
     Route: 048
     Dates: start: 19991101
  7. PERCOCET [Concomitant]
     Dosage: UNK UNK, PRN
     Route: 048
  8. NEURONTIN [Concomitant]
     Dosage: 600 MG, TID
     Route: 048
  9. TRAZODONE HYDROCHLORIDE [Concomitant]
     Dosage: 100 MG, QD
     Route: 048
  10. TRAZODONE HCL [Concomitant]
     Dosage: 50 MG, QD
     Route: 048
  11. CELEXA [Concomitant]
     Dosage: 40 MG, QD
     Route: 048
  12. LORTAB [Concomitant]
     Indication: PAIN
     Dosage: UNK
     Route: 048
     Dates: start: 19980101
  13. OXYCODONE HCL [Concomitant]
     Indication: PAIN
     Route: 048

REACTIONS (14)
  - HYPERHIDROSIS [None]
  - INJURY [None]
  - EMOTIONAL DISTRESS [None]
  - JOINT SWELLING [None]
  - DISABILITY [None]
  - PAIN IN EXTREMITY [None]
  - INSOMNIA [None]
  - RASH [None]
  - COORDINATION ABNORMAL [None]
  - MUSCLE SPASMS [None]
  - DEPRESSED MOOD [None]
  - DEEP VEIN THROMBOSIS [None]
  - PAIN [None]
  - SENSATION OF HEAVINESS [None]
